FAERS Safety Report 8793853 (Version 2)
Quarter: 2012Q4

REPORT INFORMATION
  Report Type: 
  Country: FR (occurrence: FR)
  Receive Date: 20120918
  Receipt Date: 20121116
  Transmission Date: 20130627
  Serious: Yes (Hospitalization)
  Sender: FDA-Public Use
  Company Number: FR-MERCK-1209FRA005838

PATIENT
  Age: 74 Year
  Sex: Male

DRUGS (13)
  1. ISENTRESS [Suspect]
     Indication: HIV INFECTION
     Dosage: 400 mg, bid
     Route: 048
     Dates: start: 201112, end: 20120830
  2. EPIVIR [Suspect]
     Indication: HIV INFECTION
     Dosage: 300 mg, qd
     Route: 048
     Dates: start: 201112, end: 2012
  3. EPIVIR [Suspect]
     Dosage: 150 mg, qd
     Dates: start: 2012
  4. SIFROL [Suspect]
     Indication: PARKINSON^S DISEASE
     Dosage: 2.1 mg, qd
     Route: 048
     Dates: start: 201202
  5. BISOPROLOL [Concomitant]
     Dosage: UNK
  6. CRESTOR [Concomitant]
     Dosage: UNK
  7. RAMIPRIL [Concomitant]
     Dosage: UNK
  8. PREVISCAN [Concomitant]
     Dosage: UNK
  9. ALLOPURINOL [Concomitant]
     Dosage: UNK
  10. INIPOMP [Concomitant]
     Dosage: UNK
  11. ACUPAN [Concomitant]
     Dosage: UNK
  12. MODOPAR [Concomitant]
     Indication: PARKINSON^S DISEASE
     Dosage: UNK
     Dates: start: 2010
  13. AZILECT [Concomitant]
     Indication: PARKINSON^S DISEASE
     Dosage: UNK
     Dates: start: 2010

REACTIONS (1)
  - Aplastic anaemia [Not Recovered/Not Resolved]
